FAERS Safety Report 6732835-4 (Version None)
Quarter: 2010Q2

REPORT INFORMATION
  Report Type: 
  Country: None (occurrence: None)
  Receive Date: 20100519
  Receipt Date: 20100506
  Transmission Date: 20101027
  Serious: Yes (Death)
  Sender: FDA-Public Use
  Company Number: NL-ELI_LILLY_AND_COMPANY-NL201005001811

PATIENT
  Sex: Male

DRUGS (4)
  1. CYMBALTA [Suspect]
     Indication: DIABETIC NEUROPATHY
     Dosage: 60 MG, UNK
  2. SITRIOL [Concomitant]
  3. TRAMADOL HCL [Concomitant]
  4. EFFEXOR [Concomitant]

REACTIONS (2)
  - DRUG INEFFECTIVE [None]
  - OESOPHAGEAL CARCINOMA [None]
